FAERS Safety Report 7980861-X (Version None)
Quarter: 2011Q4

REPORT INFORMATION
  Report Type: 
  Country: None (occurrence: None)
  Receive Date: 20111214
  Receipt Date: 20111119
  Transmission Date: 20120403
  Serious: Yes (Hospitalization)
  Sender: FDA-Public Use
  Company Number: US-BAYER-2011-035476

PATIENT
  Age: 38 Year
  Sex: Female
  Weight: 92.51 kg

DRUGS (7)
  1. YAZ [Suspect]
  2. YAZ [Suspect]
     Indication: CONTRACEPTION
     Dosage: UNK
     Dates: start: 20070423, end: 20090916
  3. METOPROLOL TARTRATE [Concomitant]
     Dosage: UNK
     Dates: start: 20090401
  4. PROPOXYPHENE NAPSYLATE W/PARACETAMOL [Concomitant]
     Dosage: UNK
     Dates: start: 20080302
  5. YAZ [Suspect]
     Indication: PREMENSTRUAL SYNDROME
  6. FEXOFENADINE [Concomitant]
     Indication: MULTIPLE ALLERGIES
     Dosage: UNK
     Dates: start: 20080801
  7. GEMFIBROZIL [Concomitant]
     Indication: BLOOD CHOLESTEROL INCREASED
     Dosage: UNK
     Dates: start: 20090401

REACTIONS (3)
  - ARRHYTHMIA [None]
  - SUPRAVENTRICULAR TACHYCARDIA [None]
  - INJURY [None]
